FAERS Safety Report 15031786 (Version 4)
Quarter: 2022Q2

REPORT INFORMATION
  Report Type: Spontaneous
  Country: US (occurrence: US)
  Receive Date: 20180619
  Receipt Date: 20220520
  Transmission Date: 20220720
  Serious: No
  Sender: FDA-Public Use
  Company Number: PHHY2018US026280

PATIENT
  Sex: Female

DRUGS (2)
  1. GENTEAL MILD [Suspect]
     Active Substance: HYPROMELLOSE 2910 (4000 MPA.S)
     Indication: Product used for unknown indication
     Dosage: TWICE A DAY OR SOMETIMES AT NIGHT
     Route: 047
  2. GENTEAL MILD [Suspect]
     Active Substance: HYPROMELLOSE 2910 (4000 MPA.S)
     Dosage: 3.5 MG
     Route: 047

REACTIONS (3)
  - Ocular discomfort [Recovered/Resolved]
  - Vision blurred [Recovered/Resolved]
  - Product quality issue [Unknown]
